FAERS Safety Report 18979813 (Version 1)
Quarter: 2021Q1

REPORT INFORMATION
  Report Type: Spontaneous
  Country: US (occurrence: US)
  Receive Date: 20210308
  Receipt Date: 20210308
  Transmission Date: 20210420
  Serious: No
  Sender: FDA-Public Use
  Company Number: US-BAYER-2021-092673

PATIENT
  Age: 83 Year
  Sex: Female

DRUGS (1)
  1. MIRALAX [Suspect]
     Active Substance: POLYETHYLENE GLYCOL 3350
     Indication: CONSTIPATION
     Dosage: 1 AND HALF TEASPOONS IN THE MORNING AND 2 TEASPOONS AT NIGHTS
     Route: 048
     Dates: start: 201103

REACTIONS (2)
  - Incorrect dose administered [None]
  - Drug ineffective [Unknown]
